FAERS Safety Report 8596780-4 (Version None)
Quarter: 2012Q3

REPORT INFORMATION
  Report Type: 
  Country: None (occurrence: None)
  Receive Date: 20120815
  Receipt Date: 20120807
  Transmission Date: 20120928
  Serious: Yes (Hospitalization)
  Sender: FDA-Public Use
  Company Number: CA-COVIDIEN/TYCO HEALTHCARE/MALLINCKRODT-T201203031

PATIENT
  Age: 39 Year
  Sex: Male

DRUGS (4)
  1. QUETIAPINE [Concomitant]
     Indication: INSOMNIA
     Dosage: 25 MG, UNK
  2. WELLBUTRIN [Concomitant]
     Indication: DEPRESSION
     Dosage: 150 MG, QD
  3. OXYCODONE HCL [Suspect]
     Dosage: USING UP TO 175 MG, QD
  4. ALCOHOL [Suspect]
     Dosage: 4-6 STANDARD DRINKS QD FOR OVER 5 YEARS

REACTIONS (6)
  - DRUG DIVERSION [None]
  - DRUG WITHDRAWAL SYNDROME [None]
  - ANXIETY [None]
  - HALLUCINATION, AUDITORY [None]
  - DELUSION [None]
  - INTENTIONAL DRUG MISUSE [None]
